FAERS Safety Report 6675374-1 (Version None)
Quarter: 2010Q2

REPORT INFORMATION
  Report Type: 
  Country: None (occurrence: None)
  Receive Date: 20100409
  Receipt Date: 20100330
  Transmission Date: 20101027
  Serious: No
  Sender: FDA-Public Use
  Company Number: A0849524A

PATIENT
  Age: 35 Year
  Sex: Female

DRUGS (1)
  1. TYKERB [Suspect]
     Indication: DRUG USE FOR UNKNOWN INDICATION
     Dosage: 1250MG AT NIGHT
     Route: 048
     Dates: start: 20100221

REACTIONS (8)
  - DRY SKIN [None]
  - HEADACHE [None]
  - MOUTH HAEMORRHAGE [None]
  - NAUSEA [None]
  - OEDEMA PERIPHERAL [None]
  - RASH [None]
  - STOMATITIS [None]
  - VOMITING [None]
